FAERS Safety Report 8359364-9 (Version None)
Quarter: 2012Q2

REPORT INFORMATION
  Report Type: 
  Country: None (occurrence: None)
  Receive Date: 20120514
  Receipt Date: 20120514
  Transmission Date: 20120825
  Serious: Yes (Disabling)
  Sender: FDA-Public Use
  Company Number: None

PATIENT
  Age: 44 Year
  Sex: Female
  Weight: 78.0187 kg

DRUGS (1)
  1. NUVIGIL [Suspect]
     Indication: SOMNOLENCE
     Dosage: 250 MG ONCE A DAY PO
     Route: 048
     Dates: start: 20120302, end: 20120415

REACTIONS (2)
  - VERTIGO [None]
  - LOSS OF EMPLOYMENT [None]
